FAERS Safety Report 25721640 (Version 2)
Quarter: 2025Q3

REPORT INFORMATION
  Report Type: Spontaneous
  Country: US (occurrence: US)
  Receive Date: 20250825
  Receipt Date: 20250916
  Transmission Date: 20251020
  Serious: No
  Sender: PFIZER
  Company Number: US-PFIZER INC-202500167766

PATIENT
  Age: 69 Year
  Sex: Female

DRUGS (2)
  1. TUKYSA [Suspect]
     Active Substance: TUCATINIB
     Indication: Breast cancer
     Dosage: 300 MG, 2X/DAY EVERY 12 HOURS, IN THE MORNING AND EVENING
  2. CAPECITABINE [Suspect]
     Active Substance: CAPECITABINE
     Indication: Breast cancer
     Dosage: UNK UNK, 2X/DAY EVERY 12 HOURS, IN THE MORNING AND EVENING

REACTIONS (4)
  - Rash [Unknown]
  - Dysgeusia [Unknown]
  - Retching [Unknown]
  - Vomiting [Unknown]
